FAERS Safety Report 15270358 (Version 1)
Quarter: 2018Q3

REPORT INFORMATION
  Report Type: Spontaneous
  Country: US (occurrence: US)
  Receive Date: 20180726
  Receipt Date: 20180726
  Transmission Date: 20181010
  Serious: No
  Sender: FDA-Public Use
  Company Number: None

PATIENT
  Age: 41 Year
  Sex: Male
  Weight: 94.5 kg

DRUGS (6)
  1. SAW PALMETTO [Concomitant]
     Active Substance: HERBALS\SAW PALMETTO
  2. SERTRALINE [Suspect]
     Active Substance: SERTRALINE HYDROCHLORIDE
     Indication: ANXIETY
     Dosage: ?          QUANTITY:1 TABLET(S);?
     Route: 048
     Dates: start: 20180312, end: 20180709
  3. FISH OIL [Concomitant]
     Active Substance: FISH OIL
  4. TUMERIC [Concomitant]
     Active Substance: HERBALS\TURMERIC
  5. MULTIVITAMIN [Concomitant]
     Active Substance: VITAMINS
  6. SERTRALINE [Suspect]
     Active Substance: SERTRALINE HYDROCHLORIDE
     Indication: DEPRESSION
     Dosage: ?          QUANTITY:1 TABLET(S);?
     Route: 048
     Dates: start: 20180312, end: 20180709

REACTIONS (5)
  - Dizziness [None]
  - Anxiety [None]
  - Panic attack [None]
  - Product quality issue [None]
  - Mood swings [None]

NARRATIVE: CASE EVENT DATE: 20180710
